FAERS Safety Report 6253993-4 (Version None)
Quarter: 2009Q3

REPORT INFORMATION
  Report Type: 
  Country: None (occurrence: None)
  Receive Date: 20090702
  Receipt Date: 20090625
  Transmission Date: 20100115
  Serious: Yes (Hospitalization, Other)
  Sender: FDA-Public Use
  Company Number: US-TEVA-184999USA

PATIENT
  Sex: Male
  Weight: 97.156 kg

DRUGS (6)
  1. FLUOROURACIL [Interacting]
     Indication: COLORECTAL CANCER
     Dosage: EVERY 2 WEEKS
     Route: 042
     Dates: start: 20080121, end: 20080123
  2. FOLINIC ACID [Interacting]
     Indication: COLORECTAL CANCER
     Dosage: ONCE EVERY TWO WEEKS
     Dates: start: 20080121, end: 20080121
  3. AG-013,736 (AXITINIB) [Suspect]
     Indication: COLORECTAL CANCER
     Route: 048
     Dates: start: 20080121, end: 20080123
  4. OXALIPLATIN [Suspect]
     Indication: COLORECTAL CANCER
     Dosage: ONCE EVERY 2 WEEKS
     Route: 042
     Dates: start: 20080121, end: 20080121
  5. BEVACIZUMAB [Suspect]
     Indication: COLORECTAL CANCER
     Dosage: ONCE EVERY TWO WEEKS
     Route: 042
     Dates: start: 20080121, end: 20080121
  6. ATENOLOL [Concomitant]
     Dates: start: 20020401

REACTIONS (1)
  - MYOCARDIAL INFARCTION [None]
